FAERS Safety Report 5423433-3 (Version None)
Quarter: 2007Q3

REPORT INFORMATION
  Report Type: 
  Country: None (occurrence: None)
  Receive Date: 20070823
  Receipt Date: 20070813
  Transmission Date: 20080115
  Serious: Yes (Other)
  Sender: FDA-Public Use
  Company Number: US-JNJFOC-20070704980

PATIENT
  Sex: Female
  Weight: 86.18 kg

DRUGS (7)
  1. INVEGA [Suspect]
     Indication: SCHIZOPHRENIA
     Route: 048
  2. INVEGA [Suspect]
     Indication: BIPOLAR I DISORDER
     Route: 048
  3. CYMBALTA [Concomitant]
  4. INSULIN [Concomitant]
     Route: 048
  5. ATIVAN [Concomitant]
  6. ABILIFY [Concomitant]
  7. LAMICTAL [Concomitant]

REACTIONS (1)
  - NEUROLEPTIC MALIGNANT SYNDROME [None]
